FAERS Safety Report 9860333 (Version 1)
Quarter: 2014Q1

REPORT INFORMATION
  Report Type: Spontaneous
  Country: US (occurrence: US)
  Receive Date: 20140202
  Receipt Date: 20140202
  Transmission Date: 20141002
  Serious: Yes (Death)
  Sender: FDA-Public Use
  Company Number: CHPA2014US001488

PATIENT
  Age: 29 Year
  Sex: Male

DRUGS (4)
  1. DIPHENHYDRAMINE [Suspect]
  2. OXYCODONE [Suspect]
  3. CLONAZEPAM [Suspect]
  4. CITALOPRAM [Suspect]

REACTIONS (1)
  - Intentional drug misuse [Fatal]
